FAERS Safety Report 6440109-4 (Version None)
Quarter: 2009Q4

REPORT INFORMATION
  Report Type: 
  Country: None (occurrence: None)
  Receive Date: 20091113
  Receipt Date: 20081017
  Transmission Date: 20100525
  Serious: No
  Sender: FDA-Public Use
  Company Number: A0756614A

PATIENT
  Age: 84 Year
  Sex: Male

DRUGS (7)
  1. COREG [Suspect]
     Dosage: 10MG PER DAY
     Route: 048
     Dates: start: 20080701, end: 20080908
  2. CANDESARTAN CILEXETIL [Concomitant]
  3. TAMSULOSIN [Concomitant]
  4. DUTASTERIDE [Concomitant]
  5. ASPIRIN [Concomitant]
  6. LEVOTHYROXINE SODIUM [Concomitant]
  7. SIMVASTATIN [Concomitant]

REACTIONS (1)
  - PERIPHERAL COLDNESS [None]
